FAERS Safety Report 13605439 (Version 1)
Quarter: 2017Q2

REPORT INFORMATION
  Report Type: Spontaneous
  Country: US (occurrence: US)
  Receive Date: 20170602
  Receipt Date: 20170602
  Transmission Date: 20170830
  Serious: Yes (Hospitalization)
  Sender: FDA-Public Use
  Company Number: None

PATIENT
  Age: 24 Year
  Sex: Female
  Weight: 109.8 kg

DRUGS (11)
  1. VONTROL [Suspect]
     Active Substance: DIPHENIDOL HYDROCHLORIDE
     Indication: VERTIGO
     Dosage: ?          QUANTITY:1 TABLET(S);?
     Route: 048
     Dates: start: 20170521, end: 20170601
  2. DIETERS GREEN TEA [Concomitant]
  3. DICYCLOMINE [Concomitant]
     Active Substance: DICYCLOMINE HYDROCHLORIDE
  4. ZOFRAN [Concomitant]
     Active Substance: ONDANSETRON HYDROCHLORIDE
  5. CEPHALEXIN. [Concomitant]
     Active Substance: CEPHALEXIN
  6. NEXIUM [Concomitant]
     Active Substance: ESOMEPRAZOLE MAGNESIUM
  7. HYDROCODONE/ACETAMINOPHEN [Concomitant]
     Active Substance: ACETAMINOPHEN\HYDROCODONE
  8. BACTRIM [Concomitant]
     Active Substance: SULFAMETHOXAZOLE\TRIMETHOPRIM
  9. METOPROLOL. [Concomitant]
     Active Substance: METOPROLOL
  10. KLONOPIN [Concomitant]
     Active Substance: CLONAZEPAM
  11. ORTHO CYCLEN [Concomitant]
     Active Substance: ETHINYL ESTRADIOL\NORGESTIMATE

REACTIONS (6)
  - Motor dysfunction [None]
  - Nausea [None]
  - Anxiety [None]
  - Sensory disturbance [None]
  - Feeling abnormal [None]
  - Abdominal pain upper [None]

NARRATIVE: CASE EVENT DATE: 20170524
